FAERS Safety Report 5624893-5 (Version None)
Quarter: 2008Q1

REPORT INFORMATION
  Report Type: 
  Country: None (occurrence: None)
  Receive Date: 20080213
  Receipt Date: 20080201
  Transmission Date: 20080703
  Serious: Yes (Other)
  Sender: FDA-Public Use
  Company Number: US-PFIZER INC-2008010461

PATIENT
  Sex: Female
  Weight: 93.4 kg

DRUGS (7)
  1. CHANTIX [Suspect]
     Indication: EX-SMOKER
  2. LISINOPRIL [Concomitant]
  3. CLONIDINE [Concomitant]
  4. DETROL [Concomitant]
  5. NEURONTIN [Concomitant]
  6. REQUIP [Concomitant]
  7. VYTORIN [Concomitant]

REACTIONS (2)
  - HYPOMANIA [None]
  - MANIA [None]
